FAERS Safety Report 18042088 (Version 3)
Quarter: 2021Q3

REPORT INFORMATION
  Report Type: Spontaneous
  Country: US (occurrence: US)
  Receive Date: 20200720
  Receipt Date: 20210820
  Transmission Date: 20211014
  Serious: Yes (Death, Hospitalization, Other)
  Sender: FDA-Public Use
  Company Number: US-009507513-2007USA006679

PATIENT
  Sex: Female
  Weight: 77.1 kg

DRUGS (2)
  1. GLIPIZIDE XL [Concomitant]
     Active Substance: GLIPIZIDE
     Dosage: 10 MILLIGRAM, QD
  2. JANUVIA [Suspect]
     Active Substance: SITAGLIPTIN PHOSPHATE
     Dosage: 100 MILLIGRAM, QD
     Route: 048
     Dates: start: 201102, end: 201605

REACTIONS (30)
  - Gait disturbance [Unknown]
  - Fatigue [Unknown]
  - Febrile neutropenia [Unknown]
  - Malignant neoplasm progression [Unknown]
  - Nephrolithiasis [Unknown]
  - Kidney infection [Unknown]
  - Anaemia [Unknown]
  - Peripheral embolism [Unknown]
  - Abnormal loss of weight [Unknown]
  - Blood potassium abnormal [Unknown]
  - Renal cyst [Unknown]
  - Pancreatic cyst [Unknown]
  - Lymphadenopathy [Unknown]
  - Adenocarcinoma pancreas [Fatal]
  - Arthropathy [Unknown]
  - Bone lesion [Unknown]
  - Asthenia [Unknown]
  - Hypertension [Unknown]
  - Dehydration [Unknown]
  - Diabetes mellitus inadequate control [Unknown]
  - Pulmonary embolism [Unknown]
  - Duodenal obstruction [Recovering/Resolving]
  - Renal mass [Unknown]
  - Overweight [Unknown]
  - Escherichia sepsis [Unknown]
  - Pericardial effusion [Unknown]
  - Deep vein thrombosis [Unknown]
  - Pancreatitis acute [Unknown]
  - Acute kidney injury [Recovered/Resolved]
  - Malnutrition [Unknown]

NARRATIVE: CASE EVENT DATE: 2013
